FAERS Safety Report 25700038 (Version 1)
Quarter: 2025Q3

REPORT INFORMATION
  Report Type: Spontaneous
  Country: EU (occurrence: EU)
  Receive Date: 20250819
  Receipt Date: 20250819
  Transmission Date: 20251020
  Serious: Yes (Life-Threatening, Hospitalization, Other)
  Sender: BRISTOL-MYERS SQUIBB COMPANY
  Company Number: None

PATIENT
  Age: 56 Year
  Sex: Female
  Weight: 44 kg

DRUGS (1)
  1. ZEPOSIA [Suspect]
     Active Substance: OZANIMOD HYDROCHLORIDE
     Indication: Multiple sclerosis
     Dosage: 0.92 MG 1 CPS/DAY
     Route: 048
     Dates: start: 20231125, end: 20250107

REACTIONS (1)
  - Ovarian epithelial cancer [Not Recovered/Not Resolved]

NARRATIVE: CASE EVENT DATE: 20241227
